FAERS Safety Report 7340526-4 (Version None)
Quarter: 2011Q1

REPORT INFORMATION
  Report Type: 
  Country: None (occurrence: None)
  Receive Date: 20110309
  Receipt Date: 20110307
  Transmission Date: 20110831
  Serious: No
  Sender: FDA-Public Use
  Company Number: US-TEVA-270055USA

PATIENT
  Weight: 59.928 kg

DRUGS (3)
  1. ATENOLOL [Concomitant]
     Indication: HEART RATE
  2. OSELTAMIVIR [Concomitant]
     Indication: INFLUENZA
     Dates: start: 20110304
  3. ALBUTEROL SULFATE AUTOHALER [Suspect]
     Indication: ASTHMA
     Route: 055
     Dates: start: 20110305

REACTIONS (2)
  - FEELING JITTERY [None]
  - RASH [None]
